FAERS Safety Report 18552968 (Version 1)
Quarter: 2020Q4

REPORT INFORMATION
  Report Type: Report from Study
  Country: None (occurrence: US)
  Receive Date: 20201127
  Receipt Date: 20201127
  Transmission Date: 20210114
  Serious: Yes (Other)
  Sender: FDA-Public Use
  Company Number: US-ABBVIE-20K-163-3664555-00

PATIENT
  Age: 22 Year
  Sex: Female

DRUGS (1)
  1. HUMIRA [Suspect]
     Active Substance: ADALIMUMAB
     Indication: CROHN^S DISEASE
     Dosage: CITRATE FREE
     Route: 058

REACTIONS (5)
  - Frequent bowel movements [Not Recovered/Not Resolved]
  - Ostomy bag placement [Unknown]
  - Vomiting [Recovered/Resolved]
  - Stoma obstruction [Unknown]
  - Malaise [Recovered/Resolved]

NARRATIVE: CASE EVENT DATE: 20201026
